FAERS Safety Report 24355055 (Version 2)
Quarter: 2024Q3

REPORT INFORMATION
  Report Type: Report from Study
  Country: US (occurrence: US)
  Receive Date: 20240923
  Receipt Date: 20240930
  Transmission Date: 20241017
  Serious: No
  Sender: SUNOVION
  Company Number: US-SUMITOMO PHARMA SWITZERLAND GMBH-2024SPA002350

PATIENT

DRUGS (2)
  1. ORGOVYX [Suspect]
     Active Substance: RELUGOLIX
     Indication: Prostate cancer
     Dosage: 120 MG, QD
     Route: 048
     Dates: start: 20240830
  2. IRON [Concomitant]
     Active Substance: IRON
     Indication: Asthenia
     Dosage: UNK
     Route: 065

REACTIONS (4)
  - Sinusitis [Unknown]
  - Muscular weakness [Unknown]
  - Myalgia [Unknown]
  - Incorrect dose administered [Unknown]
